FAERS Safety Report 5873222-0 (Version None)
Quarter: 2008Q3

REPORT INFORMATION
  Report Type: 
  Country: None (occurrence: None)
  Receive Date: 20080908
  Receipt Date: 20080826
  Transmission Date: 20090109
  Serious: Yes (Other)
  Sender: FDA-Public Use
  Company Number: AU-JNJFOC-20070105065

PATIENT
  Sex: Male
  Weight: 76 kg

DRUGS (15)
  1. TMC114 [Suspect]
     Route: 048
  2. TMC114 [Suspect]
     Indication: HIV INFECTION
     Route: 048
  3. XYLOCAINE [Concomitant]
     Indication: ANAL POLYPECTOMY
     Route: 061
  4. BETADINE [Concomitant]
     Indication: ANAL POLYPECTOMY
  5. ALDARA [Concomitant]
     Indication: BASAL CELL CARCINOMA
  6. EFUDIX [Concomitant]
     Indication: BOWEN'S DISEASE
  7. ZOLPIDEM [Concomitant]
     Indication: INSOMNIA
  8. DECA-DURABOLIN [Concomitant]
     Indication: BLOOD TESTOSTERONE DECREASED
  9. VALACYCLOVIR HCL [Concomitant]
     Indication: GENITAL HERPES
  10. VIAGRA [Concomitant]
     Indication: ERECTILE DYSFUNCTION
  11. CODEINE PHOSPHATE [Concomitant]
     Indication: DIARRHOEA
  12. METAMUCIL [Concomitant]
     Indication: DIARRHOEA
  13. VITAMIN B [Concomitant]
     Indication: MEDICAL DIET
  14. PENTAMIDINE [Concomitant]
     Indication: ANTIFUNGAL PROPHYLAXIS
  15. CELESTONE M [Concomitant]
     Indication: FOLLICULITIS

REACTIONS (3)
  - CRYPTOGENIC CIRRHOSIS [None]
  - PORTAL HYPERTENSION [None]
  - VARICES OESOPHAGEAL [None]
